FAERS Safety Report 7625310-6 (Version None)
Quarter: 2011Q3

REPORT INFORMATION
  Report Type: 
  Country: None (occurrence: None)
  Receive Date: 20110721
  Receipt Date: 20110719
  Transmission Date: 20111222
  Serious: No
  Sender: FDA-Public Use
  Company Number: US-PFIZER INC-2011163867

PATIENT
  Sex: Female
  Weight: 119 kg

DRUGS (5)
  1. IBUPROFEN [Concomitant]
     Dosage: 800 MG, 3X/DAY
  2. METHOTREXATE [Concomitant]
     Dosage: 25 MG, WEEKLY
     Route: 058
  3. DEPO-MEDROL [Suspect]
     Indication: ARTHRALGIA
     Dosage: 60MG/ML, FREQUENCY UNKNOWN
     Dates: start: 20110711
  4. SIMPONI [Concomitant]
     Dosage: 50 MG, MONTHLY
     Route: 058
  5. FOLIC ACID [Concomitant]
     Dosage: 800 UG, 2X/DAY

REACTIONS (4)
  - MALAISE [None]
  - ARTHRALGIA [None]
  - PAIN IN EXTREMITY [None]
  - HYPOKINESIA [None]
